FAERS Safety Report 11240156 (Version 1)
Quarter: 2015Q3

REPORT INFORMATION
  Report Type: Spontaneous
  Country: PT (occurrence: PT)
  Receive Date: 20150706
  Receipt Date: 20150706
  Transmission Date: 20151125
  Serious: Yes (Other)
  Sender: FDA-Public Use
  Company Number: PHHY2015PT080102

PATIENT
  Age: 67 Year
  Sex: Male

DRUGS (2)
  1. AMOXCLAV SANDOZ [Suspect]
     Active Substance: AMOXICILLIN\CLAVULANATE POTASSIUM
     Indication: PRODUCT USED FOR UNKNOWN INDICATION
     Route: 065
  2. ALLOPURINOL. [Concomitant]
     Active Substance: ALLOPURINOL
     Indication: PRODUCT USED FOR UNKNOWN INDICATION
     Route: 065

REACTIONS (7)
  - Dermatitis exfoliative [Recovered/Resolved]
  - Tachycardia [Unknown]
  - Hypotension [Unknown]
  - Rash pustular [Recovered/Resolved]
  - Pyrexia [Recovered/Resolved]
  - Drug reaction with eosinophilia and systemic symptoms [Recovered/Resolved]
  - Skin exfoliation [Recovered/Resolved]
